FAERS Safety Report 10100629 (Version 1)
Quarter: 2014Q2

REPORT INFORMATION
  Report Type: Report from Study
  Country: US (occurrence: US)
  Receive Date: 20140423
  Receipt Date: 20140423
  Transmission Date: 20141212
  Serious: Yes (Hospitalization)
  Sender: FDA-Public Use
  Company Number: US-ACTELION-A-NJ2014-97710

PATIENT
  Age: 50 Year
  Sex: Female

DRUGS (3)
  1. MACITENTAN [Suspect]
     Indication: PULMONARY ARTERIAL HYPERTENSION
     Dosage: 10 MG, QD
     Route: 048
     Dates: start: 20140110
  2. ADCIRCA [Concomitant]
     Dosage: UNK
  3. WARFARIN [Concomitant]

REACTIONS (3)
  - Procedural complication [Unknown]
  - Haemorrhage [Unknown]
  - Haematochezia [Unknown]
